FAERS Safety Report 7010917-X (Version None)
Quarter: 2010Q3

REPORT INFORMATION
  Report Type: 
  Country: None (occurrence: None)
  Receive Date: 20100923
  Receipt Date: 20100923
  Transmission Date: 20110219
  Serious: No
  Sender: FDA-Public Use
  Company Number: None

PATIENT
  Age: 35 Year
  Sex: Male
  Weight: 100 kg

DRUGS (1)
  1. SEROQUEL [Suspect]
     Indication: DEPRESSION
     Dosage: 25 MG DAILY ORAL (TABLET)
     Route: 048
     Dates: start: 20100301

REACTIONS (4)
  - HEPATIC STEATOSIS [None]
  - INCREASED APPETITE [None]
  - OBESITY [None]
  - WEIGHT INCREASED [None]
